FAERS Safety Report 24428258 (Version 5)
Quarter: 2025Q1

REPORT INFORMATION
  Report Type: Report from Study
  Country: US (occurrence: US)
  Receive Date: 20241011
  Receipt Date: 20250116
  Transmission Date: 20250408
  Serious: No
  Sender: AMGEN
  Company Number: US-AMGEN-USASP2024201772

PATIENT
  Age: 74 Year
  Sex: Female

DRUGS (2)
  1. TEPEZZA [Suspect]
     Active Substance: TEPROTUMUMAB-TRBW
     Indication: Endocrine ophthalmopathy
     Dosage: 1 DOSAGE FORM, Q3WK (1X Q3WKS FOR 8 INFUSIONS)
     Route: 042
     Dates: start: 20241009, end: 20250113
  2. TEPEZZA [Suspect]
     Active Substance: TEPROTUMUMAB-TRBW
     Indication: Toxic goitre

REACTIONS (6)
  - Pain [Unknown]
  - Vomiting [Unknown]
  - Taste disorder [Not Recovered/Not Resolved]
  - Nausea [Unknown]
  - Hypoacusis [Unknown]
  - Diarrhoea [Unknown]

NARRATIVE: CASE EVENT DATE: 20240101
